FAERS Safety Report 6278458-5 (Version None)
Quarter: 2009Q3

REPORT INFORMATION
  Report Type: 
  Country: None (occurrence: None)
  Receive Date: 20090722
  Receipt Date: 20090709
  Transmission Date: 20100115
  Serious: Yes (Other)
  Sender: FDA-Public Use
  Company Number: PHHY2009IT30040

PATIENT
  Sex: Female

DRUGS (2)
  1. FAMVIR [Suspect]
     Indication: VARICELLA
     Dosage: 750MG PER DAY
     Route: 048
     Dates: start: 20090624, end: 20090627
  2. ACYCLOVIR [Concomitant]

REACTIONS (6)
  - BLISTER [None]
  - DIPLOPIA [None]
  - HYPERPYREXIA [None]
  - NAUSEA [None]
  - SCAB [None]
  - VOMITING [None]
